FAERS Safety Report 17037732 (Version 1)
Quarter: 2019Q4

REPORT INFORMATION
  Report Type: Report from Study
  Country: DE (occurrence: DE)
  Receive Date: 20191115
  Receipt Date: 20191115
  Transmission Date: 20200122
  Serious: Yes (Hospitalization, Other)
  Sender: FDA-Public Use
  Company Number: PHHY2019DE141469

PATIENT
  Age: 38 Year
  Sex: Female
  Weight: 60 kg

DRUGS (4)
  1. L-THYROX [Concomitant]
     Active Substance: LEVOTHYROXINE SODIUM
     Indication: HYPOTHYROIDISM
     Dosage: 1 DF, QD (1-0-0-0)
     Route: 065
  2. VITAMIN B COMPLEX [Concomitant]
     Active Substance: CYANOCOBALAMIN\DEXPANTHENOL\NIACINAMIDE\PYRIDOXINE HYDROCHLORIDE\RIBOFLAVIN 5^-PHOSPHATE SODIUM\THIAMINE HYDROCHLORIDE\VITAMIN B COMPLEX
     Indication: VITAMIN B12 DECREASED
     Dosage: 1 DF, BID (1-1-0-0) FOR 3 MONTHS
     Route: 065
  3. GILENYA [Suspect]
     Active Substance: FINGOLIMOD HYDROCHLORIDE
     Indication: MULTIPLE SCLEROSIS
     Dosage: 0.5 MG, QD
     Route: 048
     Dates: start: 20140312, end: 20190606
  4. DEKRISTOL [Concomitant]
     Active Substance: CHOLECALCIFEROL
     Indication: PRODUCT USED FOR UNKNOWN INDICATION
     Dosage: 20000 IU, QW (ON SATURDAYS)
     Route: 065

REACTIONS (24)
  - Pain in extremity [Unknown]
  - Muscular weakness [Unknown]
  - Hypoaesthesia [Unknown]
  - Multiple sclerosis relapse [Recovering/Resolving]
  - Post herpetic neuralgia [Unknown]
  - Spinal pain [Unknown]
  - Quadriparesis [Recovering/Resolving]
  - Muscle spasticity [Unknown]
  - Progressive relapsing multiple sclerosis [Unknown]
  - Ophthalmic herpes zoster [Recovered/Resolved]
  - General physical health deterioration [Unknown]
  - Ataxia [Unknown]
  - Burning sensation [Unknown]
  - Depressed mood [Unknown]
  - Platelet count decreased [Unknown]
  - Palpitations [Recovered/Resolved]
  - Panic attack [Unknown]
  - Rash [Recovered/Resolved]
  - Gait disturbance [Unknown]
  - Herpes zoster [Recovered/Resolved]
  - Sciatica [Unknown]
  - Back pain [Unknown]
  - Malnutrition [Unknown]
  - Fatigue [Unknown]

NARRATIVE: CASE EVENT DATE: 201901
